FAERS Safety Report 20145845 (Version 6)
Quarter: 2022Q2

REPORT INFORMATION
  Report Type: Report from Study
  Country: US (occurrence: US)
  Receive Date: 20211203
  Receipt Date: 20220621
  Transmission Date: 20220721
  Serious: Yes (Hospitalization)
  Sender: FDA-Public Use
  Company Number: US-GLAXOSMITHKLINE-US2021AMR041264

PATIENT

DRUGS (1)
  1. BELANTAMAB MAFODOTIN [Suspect]
     Active Substance: BELANTAMAB MAFODOTIN
     Indication: Plasma cell myeloma
     Dosage: UNK
     Dates: start: 20210122, end: 20220401

REACTIONS (8)
  - Hospitalisation [Unknown]
  - Keratopathy [Unknown]
  - Visual acuity reduced [Unknown]
  - Foreign body sensation in eyes [Recovered/Resolved]
  - Dry eye [Recovered/Resolved]
  - Photophobia [Recovered/Resolved]
  - Night blindness [Recovered/Resolved]
  - Disease progression [Unknown]

NARRATIVE: CASE EVENT DATE: 20210226
